FAERS Safety Report 5977809-6 (Version None)
Quarter: 2008Q4

REPORT INFORMATION
  Report Type: 
  Country: None (occurrence: None)
  Receive Date: 20081203
  Receipt Date: 20081125
  Transmission Date: 20090506
  Serious: Yes (Other)
  Sender: FDA-Public Use
  Company Number: FR-BRISTOL-MYERS SQUIBB COMPANY-14425912

PATIENT
  Age: 74 Year
  Sex: Female

DRUGS (3)
  1. FOZITEC TABS 10 MG [Interacting]
     Indication: HYPERTENSION
     Route: 048
     Dates: start: 20030101
  2. APROVEL [Suspect]
     Indication: HYPERTENSION
     Dosage: AFTER 2003
     Route: 048
  3. INSULIN [Interacting]
     Indication: INSULIN-REQUIRING TYPE 2 DIABETES MELLITUS
     Route: 058
     Dates: start: 20030101

REACTIONS (3)
  - DIABETES MELLITUS INADEQUATE CONTROL [None]
  - DRUG INTERACTION [None]
  - HYPERGLYCAEMIA [None]
